FAERS Safety Report 8049033-7 (Version None)
Quarter: 2012Q1

REPORT INFORMATION
  Report Type: 
  Country: None (occurrence: None)
  Receive Date: 20120117
  Receipt Date: 20120113
  Transmission Date: 20120608
  Serious: Yes (Hospitalization)
  Sender: FDA-Public Use
  Company Number: GXKR2012DE000565

PATIENT

DRUGS (3)
  1. IBUPROFEN [Suspect]
     Indication: BACK PAIN
     Dosage: 2X400 MG - THREE TIMES/NMONTH
  2. IBUPROFEN [Suspect]
     Dosage: 2 X 600 MG
     Route: 048
     Dates: start: 20110808, end: 20110809
  3. AMOXICILLIN [Suspect]
     Dosage: 3 X 1
     Route: 048
     Dates: start: 20110808, end: 20110809

REACTIONS (2)
  - RENAL FAILURE ACUTE [None]
  - BLOOD CREATININE INCREASED [None]
